FAERS Safety Report 6047172-3 (Version None)
Quarter: 2009Q1

REPORT INFORMATION
  Report Type: 
  Country: None (occurrence: None)
  Receive Date: 20090122
  Receipt Date: 20090120
  Transmission Date: 20090719
  Serious: Yes (Death)
  Sender: FDA-Public Use
  Company Number: US-BAYER-200911163GPV

PATIENT
  Age: 83 Year
  Sex: Male

DRUGS (2)
  1. MOXIFLOXACIN HCL [Suspect]
     Indication: PNEUMONIA
     Dosage: AS USED: 400 MG
     Route: 048
  2. PREDNISONE [Concomitant]
     Indication: DRUG USE FOR UNKNOWN INDICATION
     Dosage: AS USED: 20 MG
     Route: 065

REACTIONS (7)
  - ABDOMINAL PAIN [None]
  - DIARRHOEA [None]
  - HYPOTENSION [None]
  - NAUSEA [None]
  - PSEUDOMEMBRANOUS COLITIS [None]
  - PYREXIA [None]
  - VOMITING [None]
